FAERS Safety Report 9252601 (Version 1)
Quarter: 2013Q1

REPORT INFORMATION
  Report Type: Spontaneous
  Country: US (occurrence: None)
  Receive Date: 20130305
  Receipt Date: 20130305
  Transmission Date: 20140127
  Serious: Yes (Other)
  Sender: FDA-Public Use
  Company Number: 163-21880-12063496

PATIENT
  Age: 62 Year
  Sex: Female
  Weight: 105.7 kg

DRUGS (1)
  1. REVLIMID [Suspect]
     Indication: PLASMA CELL MYELOMA
     Dosage: 15 MG, QD ON DAYS 1-21 OF 28 DAY CYCLE, PO
     Dates: start: 20100317

REACTIONS (1)
  - Thrombosis [None]
